FAERS Safety Report 4974276-6 (Version None)
Quarter: 2006Q2

REPORT INFORMATION
  Report Type: 
  Country: None (occurrence: None)
  Receive Date: 20060417
  Receipt Date: 20050309
  Transmission Date: 20061013
  Serious: Yes (Hospitalization, Disabling)
  Sender: FDA-Public Use
  Company Number: US-MERCK-0503USA01961

PATIENT
  Age: 68 Year
  Sex: Female
  Weight: 92 kg

DRUGS (5)
  1. VIOXX [Suspect]
     Indication: ARTHRALGIA
     Route: 048
     Dates: start: 20020531, end: 20040930
  2. VIOXX [Suspect]
     Route: 048
     Dates: start: 20020531, end: 20040930
  3. VIOXX [Suspect]
     Route: 048
     Dates: start: 20020531, end: 20040930
  4. SYNTHROID [Concomitant]
     Indication: HYPOTHYROIDISM
     Route: 048
     Dates: start: 20040912
  5. PREMARIN [Concomitant]
     Route: 065

REACTIONS (21)
  - ACUTE SINUSITIS [None]
  - ARTHROPATHY [None]
  - BLOOD CHOLESTEROL INCREASED [None]
  - BRONCHITIS ACUTE [None]
  - CARDIOMEGALY [None]
  - CHEST PAIN [None]
  - CONSTIPATION [None]
  - DEPRESSION [None]
  - DERMATOPHYTOSIS [None]
  - DIZZINESS [None]
  - FEELING HOT [None]
  - INFLUENZA LIKE ILLNESS [None]
  - MUSCLE SPASMS [None]
  - MYOCARDIAL INFARCTION [None]
  - NAIL DISORDER [None]
  - PANCREATITIS [None]
  - PLANTAR FASCIITIS [None]
  - PRURITUS [None]
  - TINNITUS [None]
  - URINARY TRACT INFECTION [None]
  - VISION BLURRED [None]
